FAERS Safety Report 22996237 (Version 3)
Quarter: 2023Q4

REPORT INFORMATION
  Report Type: Spontaneous
  Country: JP (occurrence: JP)
  Receive Date: 20230927
  Receipt Date: 20231204
  Transmission Date: 20240109
  Serious: Yes (Hospitalization, Other)
  Sender: FDA-Public Use
  Company Number: JP-SA-2023SA291470

PATIENT
  Age: 35 Year
  Sex: Male

DRUGS (7)
  1. DUPIXENT [Suspect]
     Active Substance: DUPILUMAB
     Indication: Asthma
     Dosage: 600 MG, 1X
     Route: 058
     Dates: start: 20221220, end: 20221220
  2. DUPIXENT [Suspect]
     Active Substance: DUPILUMAB
     Dosage: 300 MG, QOW
     Route: 058
     Dates: start: 202301, end: 20230110
  3. PREDONINE [Concomitant]
     Active Substance: PREDNISOLONE
     Indication: Eosinophilic granulomatosis with polyangiitis
     Dosage: BEFORE DUPIXENT TREATMENT
     Route: 065
  4. PREDONINE [Concomitant]
     Active Substance: PREDNISOLONE
     Indication: Asthma
     Dosage: 30 MG
     Route: 065
     Dates: start: 20221226
  5. PREDONINE [Concomitant]
     Active Substance: PREDNISOLONE
     Indication: Chronic eosinophilic rhinosinusitis
     Dosage: TAPERED
     Route: 065
  6. PREDONINE [Concomitant]
     Active Substance: PREDNISOLONE
     Dosage: CURRENTLY 6 MG/DAY
     Route: 065
  7. FLUTICASONE PROPIONATE\FORMOTEROL FUMARATE [Concomitant]
     Active Substance: FLUTICASONE PROPIONATE\FORMOTEROL FUMARATE
     Indication: Asthma
     Dosage: BEFORE DUPIXENT TREATMENT
     Route: 065

REACTIONS (7)
  - Eosinophilic granulomatosis with polyangiitis [Recovering/Resolving]
  - Pyrexia [Recovering/Resolving]
  - Asthma [Recovering/Resolving]
  - Radial nerve palsy [Recovering/Resolving]
  - Abdominal discomfort [Recovering/Resolving]
  - Mononeuropathy multiplex [Recovering/Resolving]
  - Hypoaesthesia [Recovering/Resolving]

NARRATIVE: CASE EVENT DATE: 20221221
